FAERS Safety Report 11228344 (Version 4)
Quarter: 2015Q4

REPORT INFORMATION
  Report Type: Report from Study
  Country: JP (occurrence: JP)
  Receive Date: 20150630
  Receipt Date: 20151026
  Transmission Date: 20160304
  Serious: Yes (Life-Threatening, Other)
  Sender: FDA-Public Use
  Company Number: JP-OTSUKA-2015_004214

PATIENT

DRUGS (15)
  1. VASOLAN [Concomitant]
     Active Substance: VERAPAMIL HYDROCHLORIDE
     Indication: SUPRAVENTRICULAR TACHYCARDIA
     Dosage: 5 MG, DAILY DOSE
     Route: 042
     Dates: start: 20150425, end: 20150425
  2. VASOLAN [Concomitant]
     Active Substance: VERAPAMIL HYDROCHLORIDE
     Dosage: 5 MG, UNK
     Route: 042
     Dates: start: 20150428, end: 20150428
  3. BISOPROLOL [Concomitant]
     Active Substance: BISOPROLOL
     Indication: SUPRAVENTRICULAR TACHYCARDIA
     Dosage: 4 MG, DAILY DOSE
     Route: 062
     Dates: start: 20150425
  4. TOLVAPTAN [Suspect]
     Active Substance: TOLVAPTAN
     Indication: OEDEMA DUE TO HEPATIC DISEASE
     Dosage: 7.5 MG, QD(DURING THE MORNING)
     Route: 048
     Dates: start: 20150420, end: 20150429
  5. RHYTHMY [Concomitant]
     Active Substance: RILMAZAFONE HYDROCHLORIDE
     Indication: PRODUCT USED FOR UNKNOWN INDICATION
     Dosage: 1 MG, DAILY DOSE
     Route: 048
     Dates: end: 20150429
  6. DESLANOSIDE [Concomitant]
     Active Substance: DESLANOSIDE
     Indication: SUPRAVENTRICULAR TACHYCARDIA
     Dosage: 0.4 MG, DAILY DOSE
     Route: 042
     Dates: start: 20150425, end: 20150425
  7. RYTHMODAN P [Concomitant]
     Indication: SUPRAVENTRICULAR TACHYCARDIA
     Dosage: 50 MG, DAILY DOSE
     Route: 042
     Dates: start: 20150428, end: 20150428
  8. LANIRAPID [Concomitant]
     Active Substance: METILDIGOXIN
     Indication: SUPRAVENTRICULAR TACHYCARDIA
     Dosage: 0.05 MG, DAILY DOSE
     Route: 048
     Dates: start: 20150428, end: 20150429
  9. DESLANOSIDE [Concomitant]
     Active Substance: DESLANOSIDE
     Indication: PRODUCT USED FOR UNKNOWN INDICATION
     Dosage: 0.4 MG, DAILY DOSE
     Route: 042
     Dates: end: 20150419
  10. PIMOBENDAN [Concomitant]
     Active Substance: PIMOBENDAN
     Indication: SUPRAVENTRICULAR TACHYCARDIA
     Dosage: 5 MG, DAILY DOSE
     Route: 048
     Dates: start: 20150425, end: 20150429
  11. SPIRONOLACTONE. [Concomitant]
     Active Substance: SPIRONOLACTONE
     Indication: FLUID RETENTION
     Dosage: 50 MG, DAILY DOSE
     Route: 048
     Dates: end: 20150429
  12. SOLDACTONE [Concomitant]
     Active Substance: CANRENOATE POTASSIUM
     Indication: FLUID RETENTION
     Dosage: 400 MG, DAILY DOSE
     Route: 042
     Dates: end: 20150419
  13. LIVACT [Concomitant]
     Active Substance: AMINO ACIDS
     Indication: FLUID RETENTION
     Dosage: 2 DF, DAILY DOSE
     Route: 048
     Dates: end: 20150429
  14. LASIX M [Concomitant]
     Active Substance: FUROSEMIDE
     Indication: FLUID RETENTION
     Dosage: 20 MG, DAILY DOSE
     Route: 048
     Dates: start: 20150425, end: 20150429
  15. DISOPYRAMIDE PHOSPHATE. [Concomitant]
     Active Substance: DISOPYRAMIDE PHOSPHATE
     Indication: SUPRAVENTRICULAR TACHYCARDIA
     Dosage: 300 MG, DAILY DOSE
     Route: 048
     Dates: start: 20150428, end: 20150429

REACTIONS (3)
  - Hepatic encephalopathy [Recovering/Resolving]
  - Supraventricular tachycardia [Recovered/Resolved]
  - Supraventricular tachycardia [Recovered/Resolved]

NARRATIVE: CASE EVENT DATE: 20150425
